FAERS Safety Report 11971153 (Version 1)
Quarter: 2016Q1

REPORT INFORMATION
  Report Type: Spontaneous
  Country: US (occurrence: None)
  Receive Date: 20160127
  Receipt Date: 20160127
  Transmission Date: 20160526
  Serious: Yes (Hospitalization)
  Sender: FDA-Public Use
  Company Number: None

PATIENT
  Age: 72 Year
  Sex: Male
  Weight: 82.5 kg

DRUGS (1)
  1. WARFARIN [Suspect]
     Active Substance: WARFARIN
     Indication: ATRIAL FIBRILLATION
     Route: 048

REACTIONS (7)
  - Haematocrit decreased [None]
  - Polyp [None]
  - Haemoglobin decreased [None]
  - Asthenia [None]
  - Thrombocytopenia [None]
  - Hypoalbuminaemia [None]
  - Faeces discoloured [None]

NARRATIVE: CASE EVENT DATE: 20151106
